FAERS Safety Report 7389641-X (Version None)
Quarter: 2011Q1

REPORT INFORMATION
  Report Type: 
  Country: None (occurrence: None)
  Receive Date: 20110323
  Receipt Date: 20110308
  Transmission Date: 20110831
  Serious: Yes (Hospitalization, Other)
  Sender: FDA-Public Use
  Company Number: 2009AC000221

PATIENT
  Age: 48 Year
  Sex: Female
  Weight: 81.6475 kg

DRUGS (94)
  1. DIGOXIN [Suspect]
     Indication: ARRHYTHMIA
     Dosage: 0.25 MG;QD
  2. DIGOXIN [Suspect]
     Indication: VENTRICULAR EXTRASYSTOLES
     Dosage: 0.250 MG;QD;PO
     Route: 048
     Dates: start: 19910201, end: 19910501
  3. TIAGABINE HCL [Concomitant]
  4. NOVOLIN 70/30 [Concomitant]
  5. TEMAZEPAM [Concomitant]
  6. LASIX [Concomitant]
  7. GENTAMICIN [Concomitant]
  8. VIOXX [Concomitant]
  9. LEVAQUIN [Concomitant]
  10. AUGMENTIN [Concomitant]
  11. LOPRESSOR [Concomitant]
  12. ZITHROMAX [Concomitant]
  13. PANCOF XP [Concomitant]
  14. HUMALOG [Concomitant]
  15. BUMEX [Concomitant]
  16. LOVASTATIN [Concomitant]
  17. IMDUR [Concomitant]
  18. GLYNASE [Concomitant]
  19. QUINIDEX [Concomitant]
  20. ASPIRIN [Concomitant]
  21. DOXEPIN [Concomitant]
  22. ACETAMINOPHEN [Concomitant]
  23. ZITHROMAX [Concomitant]
  24. NIFEDIPINE [Concomitant]
  25. ROZEREM [Concomitant]
  26. XALATAN [Concomitant]
  27. MORPHINE [Concomitant]
  28. SINEQUAN [Concomitant]
  29. TOPROL-XL [Concomitant]
  30. LEVOTHYROXINE SODIUM [Concomitant]
  31. ZYRTEC [Concomitant]
  32. AVANDAMET [Concomitant]
  33. LORATADINE [Concomitant]
  34. CARAFATE [Concomitant]
  35. MEXILITENE [Concomitant]
  36. ASPIRIN [Concomitant]
  37. TEMAZEPAM [Concomitant]
  38. COREG [Concomitant]
  39. DIGOXIN [Suspect]
     Dosage: 0.250 MG;QD;PO
     Route: 048
     Dates: start: 19990501, end: 20080201
  40. CARAFATE [Concomitant]
  41. METOPROLOL TARTRATE [Concomitant]
  42. METFORMIN [Concomitant]
  43. MEXITIL [Concomitant]
  44. RELAFEN [Concomitant]
  45. MAG OXIDE [Concomitant]
  46. IMDUR [Concomitant]
  47. LOVASTATIN [Concomitant]
  48. REGLAN [Concomitant]
  49. VANCOMYCIN [Concomitant]
  50. NITROGLYCERIN [Concomitant]
  51. SUCRALFATE [Concomitant]
  52. FOSINOPRIL SODIUM [Concomitant]
  53. ANTARA (MICRONIZED) [Concomitant]
  54. AZITHROMYCIN [Concomitant]
  55. FLUCONAZOLE [Concomitant]
  56. BALACET [Concomitant]
  57. QUINIDINE [Concomitant]
  58. LANTUS [Concomitant]
  59. GABAPENTIN [Concomitant]
  60. LEVAQUIN [Concomitant]
  61. SYNTHROID [Concomitant]
  62. OMEPRAZOLE [Concomitant]
  63. MONOPRIL [Concomitant]
  64. ZOCOR [Concomitant]
  65. APEDIA [Concomitant]
  66. HUMULIN R [Concomitant]
  67. AMBIENT [Concomitant]
  68. PROMETHEGAN [Concomitant]
  69. ASPIRIN [Concomitant]
  70. OMEPRAZOLE [Concomitant]
  71. TOPROL-XL [Concomitant]
  72. TRICOR [Concomitant]
  73. XALATAN [Concomitant]
  74. LASIX [Concomitant]
  75. DARVOCET [Concomitant]
  76. SYNTHROID [Concomitant]
  77. TIAGABINE HCL [Concomitant]
  78. LANTUS [Concomitant]
  79. FORTAZ [Concomitant]
  80. ROSEPHIN [Concomitant]
  81. NITROGLYCERIN [Concomitant]
  82. HEPARIN [Concomitant]
  83. PHENERGAN HCL [Concomitant]
  84. DIGOXIN [Suspect]
     Indication: SUPRAVENTRICULAR TACHYCARDIA
     Dosage: 1X
     Dates: start: 19990114, end: 19990114
  85. LISINOPRIL [Concomitant]
  86. DARVOCET [Concomitant]
  87. QUININE SULFATE [Concomitant]
  88. ISOSORBIDE DINITRATE [Concomitant]
  89. POTASSIUM [Concomitant]
  90. GLUCOPHAGE [Concomitant]
  91. HYDRO-TUSSIN [Concomitant]
  92. GAIN-TUSS [Concomitant]
  93. APAP W/ CODEINE [Concomitant]
  94. AMITRIPTYLINE HCL [Concomitant]

REACTIONS (65)
  - TOXICITY TO VARIOUS AGENTS [None]
  - VOMITING [None]
  - DIARRHOEA [None]
  - COUGH [None]
  - ISCHAEMIC CARDIOMYOPATHY [None]
  - VITREOUS HAEMORRHAGE [None]
  - HYPERTENSION [None]
  - DEHYDRATION [None]
  - HEPATIC STEATOSIS [None]
  - SKIN ULCER [None]
  - NEUROPATHY PERIPHERAL [None]
  - BUNDLE BRANCH BLOCK LEFT [None]
  - MYOCARDIAL INFARCTION [None]
  - PALPITATIONS [None]
  - CARDIAC DISORDER [None]
  - DIZZINESS [None]
  - CARDIAC FAILURE CHRONIC [None]
  - ANGINA PECTORIS [None]
  - GASTRITIS EROSIVE [None]
  - HAEMATOMA [None]
  - SUPRAVENTRICULAR TACHYCARDIA [None]
  - ASTHENIA [None]
  - VITREOUS DETACHMENT [None]
  - CARDIAC VALVE DISEASE [None]
  - HYPOTENSION [None]
  - HYPERHIDROSIS [None]
  - GASTRITIS [None]
  - DUODENITIS [None]
  - GRAFT INFECTION [None]
  - GLYCOSYLATED HAEMOGLOBIN INCREASED [None]
  - CONDUCTION DISORDER [None]
  - INJURY [None]
  - DYSPNOEA [None]
  - OEDEMA PERIPHERAL [None]
  - HEART RATE IRREGULAR [None]
  - DYSLIPIDAEMIA [None]
  - HIATUS HERNIA [None]
  - ENDOCARDITIS BACTERIAL [None]
  - STAPHYLOCOCCAL INFECTION [None]
  - OSTEOMYELITIS [None]
  - BRONCHITIS [None]
  - NAUSEA [None]
  - SINUS BRADYCARDIA [None]
  - IMPAIRED HEALING [None]
  - MYALGIA [None]
  - CHEST PAIN [None]
  - ELECTROLYTE IMBALANCE [None]
  - GOITRE [None]
  - TENDERNESS [None]
  - HYPOAESTHESIA [None]
  - CELLULITIS [None]
  - RENAL FAILURE [None]
  - HYPERKALAEMIA [None]
  - RETINAL TEAR [None]
  - INFLUENZA LIKE ILLNESS [None]
  - VENTRICULAR TACHYCARDIA [None]
  - CONTUSION [None]
  - PYREXIA [None]
  - HEADACHE [None]
  - METABOLIC DISORDER [None]
  - GRAFT THROMBOSIS [None]
  - PERIPHERAL ISCHAEMIA [None]
  - ANGINA UNSTABLE [None]
  - CORONARY ARTERY DISEASE [None]
  - CARDIOMYOPATHY [None]
